FAERS Safety Report 9502896 (Version 1)
Quarter: 2013Q1

REPORT INFORMATION
  Report Type: Spontaneous
  Country: US (occurrence: None)
  Receive Date: 20130225
  Receipt Date: 20130225
  Transmission Date: 20140127
  Serious: No
  Sender: FDA-Public Use
  Company Number: 364557

PATIENT
  Sex: Male

DRUGS (4)
  1. VICTOZA (LIRAGLUTIDE) SOLUTION FOR INJECTION [Suspect]
     Indication: TYPE 2 DIABETES MELLITUS
  2. ACTOS (PIOGLITAZONE HYDRCHLORIDE) [Concomitant]
  3. GLIMEPIRIDE [Suspect]
  4. METFORMIN (METOFORMIN) [Concomitant]

REACTIONS (2)
  - Dizziness [None]
  - Injection site haematoma [None]
